FAERS Safety Report 9866971 (Version 1)
Quarter: 2014Q1

REPORT INFORMATION
  Report Type: Spontaneous
  Country: US (occurrence: None)
  Receive Date: 20140203
  Receipt Date: 20140203
  Transmission Date: 20141002
  Serious: Yes (Life-Threatening, Hospitalization, Disabling, Other)
  Sender: FDA-Public Use
  Company Number: None

PATIENT
  Age: 53 Year
  Sex: Male
  Weight: 108.86 kg

DRUGS (2)
  1. VICODIN ES [Suspect]
     Indication: BACK INJURY
     Dosage: TAKEN BY MOUTH
     Dates: start: 20080201, end: 20110204
  2. NORCO 10 [Suspect]
     Indication: BACK INJURY
     Dosage: TAKEN BY MOUTH
     Dates: start: 20040202, end: 20060207

REACTIONS (5)
  - Colon cancer stage IV [None]
  - Metastases to liver [None]
  - Hepatic cirrhosis [None]
  - Neuropathy peripheral [None]
  - Neuralgia [None]
